FAERS Safety Report 19575592 (Version 1)
Quarter: 2021Q3

REPORT INFORMATION
  Report Type: Spontaneous
  Country: US (occurrence: US)
  Receive Date: 20210716
  Receipt Date: 20210716
  Transmission Date: 20211014
  Serious: Yes (Death)
  Sender: FDA-Public Use
  Company Number: None

PATIENT
  Age: 70 Year
  Sex: Male

DRUGS (1)
  1. DEFERASIROX TAB 360MG [Suspect]
     Active Substance: DEFERASIROX
     Dosage: OTHER FREQUENCY:OTHER;?
     Route: 048
     Dates: start: 202103

REACTIONS (1)
  - Death [None]

NARRATIVE: CASE EVENT DATE: 20210625
